FAERS Safety Report 24407243 (Version 1)
Quarter: 2024Q4

REPORT INFORMATION
  Report Type: Spontaneous
  Country: US (occurrence: US)
  Receive Date: 20241007
  Receipt Date: 20241007
  Transmission Date: 20250115
  Serious: No
  Sender: SANOFI AVENTIS
  Company Number: US-SA-2024SA287116

PATIENT
  Age: 10 Year
  Sex: Female
  Weight: 29.025 kg

DRUGS (1)
  1. DUPIXENT [Suspect]
     Active Substance: DUPILUMAB
     Indication: Dermatitis atopic
     Dosage: 300 MG, Q4W
     Route: 058
     Dates: start: 2024

REACTIONS (3)
  - Eczema [Unknown]
  - Skin irritation [Unknown]
  - Erythema [Unknown]

NARRATIVE: CASE EVENT DATE: 20240101
